FAERS Safety Report 15402217 (Version 1)
Quarter: 2018Q3

REPORT INFORMATION
  Report Type: Spontaneous
  Country: US (occurrence: US)
  Receive Date: 20180919
  Receipt Date: 20180919
  Transmission Date: 20181010
  Serious: No
  Sender: FDA-Public Use
  Company Number: US-MYLANLABS-2018M1066206

PATIENT
  Sex: Female
  Weight: 77.11 kg

DRUGS (2)
  1. METFORMIN [Concomitant]
     Active Substance: METFORMIN HYDROCHLORIDE
     Indication: PRODUCT USED FOR UNKNOWN INDICATION
     Dosage: UNK
  2. FENTANYL TRANSDERMAL SYSTEM [Suspect]
     Active Substance: FENTANYL
     Indication: PAIN
     Dosage: UNK
     Route: 062

REACTIONS (6)
  - Anxiety [Recovering/Resolving]
  - Wrong technique in product usage process [Recovering/Resolving]
  - Drug ineffective [Recovering/Resolving]
  - Withdrawal syndrome [Recovering/Resolving]
  - Product adhesion issue [Recovering/Resolving]
  - Sensory disturbance [Recovering/Resolving]
